FAERS Safety Report 10099227 (Version 2)
Quarter: 2014Q2

REPORT INFORMATION
  Report Type: Spontaneous
  Country: US (occurrence: US)
  Receive Date: 20140423
  Receipt Date: 20140423
  Transmission Date: 20141212
  Serious: No
  Sender: FDA-Public Use
  Company Number: US-GILEAD-2013-0068427

PATIENT
  Sex: Male

DRUGS (6)
  1. LETAIRIS [Suspect]
     Indication: PULMONARY ARTERIAL HYPERTENSION
     Dosage: 5 MG, QD
     Dates: start: 20120120
  2. LETAIRIS [Suspect]
     Indication: PULMONARY VASCULAR DISORDER
  3. LETAIRIS [Suspect]
     Indication: ASTHMA
  4. LETAIRIS [Suspect]
     Indication: ASPERGER^S DISORDER
  5. LETAIRIS [Suspect]
     Indication: CYTOGENETIC ABNORMALITY
  6. ADCIRCA [Suspect]

REACTIONS (1)
  - Syncope [Unknown]
